FAERS Safety Report 4806850-1 (Version None)
Quarter: 2005Q4

REPORT INFORMATION
  Report Type: 
  Country: None (occurrence: None)
  Receive Date: 20051019
  Receipt Date: 20050928
  Transmission Date: 20060501
  Serious: Yes (Other)
  Sender: FDA-Public Use
  Company Number: EWC050644606

PATIENT
  Age: 72 Year
  Sex: Female

DRUGS (3)
  1. ZYPREXA [Suspect]
     Indication: SCHIZOPHRENIA
     Dosage: 20 MG/1 DAY
     Route: 048
     Dates: start: 20050201
  2. LEXATIN              (BROMAZEPAM) [Concomitant]
  3. NOCTAMID            (LORMETAZEPAM0 [Concomitant]

REACTIONS (6)
  - ACCOMMODATION DISORDER [None]
  - DRY EYE [None]
  - DRY MOUTH [None]
  - KERATITIS [None]
  - POLYURIA [None]
  - VISION BLURRED [None]
